FAERS Safety Report 19216605 (Version 1)
Quarter: 2021Q2

REPORT INFORMATION
  Report Type: Spontaneous
  Country: US (occurrence: US)
  Receive Date: 20210505
  Receipt Date: 20210505
  Transmission Date: 20210717
  Serious: No
  Sender: FDA-Public Use
  Company Number: None

PATIENT
  Age: 69 Year
  Sex: Male

DRUGS (1)
  1. NETARSUDIL (NETARSUDIL 0.02% SOLN,OPH) [Suspect]
     Active Substance: NETARSUDIL MESYLATE
     Indication: GLAUCOMA
     Dates: start: 20200311, end: 20201207

REACTIONS (1)
  - Conjunctival oedema [None]

NARRATIVE: CASE EVENT DATE: 20201207
